FAERS Safety Report 7199494-0 (Version None)
Quarter: 2010Q4

REPORT INFORMATION
  Report Type: 
  Country: None (occurrence: None)
  Receive Date: 20101228
  Receipt Date: 20101215
  Transmission Date: 20110411
  Serious: Yes (Other)
  Sender: FDA-Public Use
  Company Number: PHHY2010JP43136

PATIENT
  Age: 52 Year
  Sex: Female

DRUGS (2)
  1. ZOMETA [Suspect]
     Indication: METASTASES TO BONE
     Dosage: 4 MG PER ADMINISTRATION
     Route: 041
     Dates: end: 20071101
  2. AREDIA [Suspect]
     Indication: METASTASES TO BONE
     Dosage: 30 MG PER ADMINISTRATION
     Route: 041

REACTIONS (5)
  - BONE DISORDER [None]
  - DENTAL CLEANING [None]
  - GINGIVAL SWELLING [None]
  - OSTEOMYELITIS [None]
  - PURULENT DISCHARGE [None]
